FAERS Safety Report 19625431 (Version 1)
Quarter: 2021Q3

REPORT INFORMATION
  Report Type: Spontaneous
  Country: US (occurrence: US)
  Receive Date: 20210728
  Receipt Date: 20210728
  Transmission Date: 20211014
  Serious: Yes (Hospitalization)
  Sender: FDA-Public Use
  Company Number: None

PATIENT
  Sex: Male

DRUGS (17)
  1. CEFDINIR. [Concomitant]
     Active Substance: CEFDINIR
  2. DOXYCYCL HYC [Concomitant]
     Active Substance: DOXYCYCLINE HYCLATE
  3. DULOXETINE. [Concomitant]
     Active Substance: DULOXETINE
  4. METHYLPRED [Concomitant]
     Active Substance: METHYLPREDNISOLONE
  5. CLINDAMYCIN. [Concomitant]
     Active Substance: CLINDAMYCIN
  6. MONTELUKAST [Concomitant]
     Active Substance: MONTELUKAST SODIUM
  7. TRIAMCINOLON CRE [Concomitant]
  8. TREMFYA [Suspect]
     Active Substance: GUSELKUMAB
     Indication: PSORIASIS
     Dosage: ?          OTHER FREQUENCY:Q8WK;?
     Route: 058
     Dates: start: 20200328
  9. TAMSULOSIN [Concomitant]
     Active Substance: TAMSULOSIN
  10. HYDROCO/APAP [Concomitant]
     Active Substance: ACETAMINOPHEN\HYDROCODONE
  11. ROSUVASTATIN. [Concomitant]
     Active Substance: ROSUVASTATIN
  12. TRELEGY ELLIPTA [Concomitant]
     Active Substance: FLUTICASONE FUROATE\UMECLIDINIUM BROMIDE\VILANTEROL TRIFENATATE
  13. VITAMIN D3 [Concomitant]
     Active Substance: CHOLECALCIFEROL
  14. TIZANIDINE. [Concomitant]
     Active Substance: TIZANIDINE
  15. MUPIROCIN OIN [Concomitant]
  16. SMZ/TMP DS [Concomitant]
     Active Substance: SULFAMETHOXAZOLE\TRIMETHOPRIM
  17. BREZTRI AERO SPHERE [Concomitant]

REACTIONS (1)
  - Neck surgery [None]
